FAERS Safety Report 8855563 (Version 1)
Quarter: 2012Q4

REPORT INFORMATION
  Report Type: 
  Country: US (occurrence: US)
  Receive Date: 20121023
  Receipt Date: 20121023
  Transmission Date: 20130627
  Serious: No
  Sender: FDA-Public Use
  Company Number: US-AMGEN-USASP2012059222

PATIENT
  Age: 70 Year
  Sex: Female
  Weight: 63.49 kg

DRUGS (10)
  1. ENBREL [Suspect]
     Indication: PSORIATIC ARTHROPATHY
     Dosage: 50 mg, qwk
     Route: 058
  2. METOTREXATE [Concomitant]
     Dosage: 2.5 mg, UNK
     Route: 048
  3. METOTREXATE [Concomitant]
     Dosage: 50MG/2ML
     Route: 058
  4. FOLIC ACID [Concomitant]
     Dosage: UNK
     Route: 048
  5. MAGNESIUM [Concomitant]
     Dosage: 200 mg, UNK
     Route: 048
  6. B12                                /00056201/ [Concomitant]
     Dosage: 1000 mug, UNK
     Route: 048
  7. CALCIUM D3                         /00944201/ [Concomitant]
     Dosage: 600 UNK, UNK
     Route: 048
  8. TURMERIC                           /01079602/ [Concomitant]
     Dosage: 500 mg, UNK
  9. GINGER                             /01646602/ [Concomitant]
     Dosage: 500 mg, UNK
     Route: 048
  10. MULTI [Concomitant]
     Route: 048

REACTIONS (5)
  - Back pain [Unknown]
  - Musculoskeletal pain [Unknown]
  - Arthralgia [Unknown]
  - Headache [Unknown]
  - Weight decreased [Unknown]
